FAERS Safety Report 6258592-6 (Version None)
Quarter: 2009Q3

REPORT INFORMATION
  Report Type: 
  Country: None (occurrence: None)
  Receive Date: 20090707
  Receipt Date: 20090626
  Transmission Date: 20100115
  Serious: Yes (Other)
  Sender: FDA-Public Use
  Company Number: US-TEVA-040796

PATIENT
  Sex: Female
  Weight: 46.762 kg

DRUGS (4)
  1. CLARAVIS [Suspect]
     Indication: ACNE CYSTIC
     Dosage: 20 MG, BID
     Route: 048
     Dates: start: 20090123, end: 20090206
  2. CILEST [Concomitant]
     Dates: end: 20090130
  3. BENZOYL PEROXIDE [Concomitant]
  4. TRETINOIN [Concomitant]

REACTIONS (1)
  - UNINTENDED PREGNANCY [None]
